FAERS Safety Report 20978955 (Version 2)
Quarter: 2022Q2

REPORT INFORMATION
  Report Type: Report from Study
  Country: US (occurrence: None)
  Receive Date: 20220619
  Receipt Date: 20220629
  Transmission Date: 20220721
  Serious: Yes (Other)
  Sender: FDA-Public Use
  Company Number: US-ROCHE-3084181

PATIENT
  Age: 69 Year
  Sex: Female
  Weight: 92.9 kg

DRUGS (17)
  1. RANIBIZUMAB [Suspect]
     Active Substance: RANIBIZUMAB
     Indication: Macular degeneration
     Dosage: DOSE OF STUDY DRUG FIRST ADMINISTERED-100 MG/ML?ON 24/MAR/2021, DOSE LAST STUDY DRUG ADMIN PRIOR SAE
     Route: 050
     Dates: start: 20201002
  2. RANIBIZUMAB [Suspect]
     Active Substance: RANIBIZUMAB
  3. RANIBIZUMAB [Suspect]
     Active Substance: RANIBIZUMAB
  4. RANIBIZUMAB [Suspect]
     Active Substance: RANIBIZUMAB
  5. RANIBIZUMAB [Suspect]
     Active Substance: RANIBIZUMAB
  6. RANIBIZUMAB [Concomitant]
     Active Substance: RANIBIZUMAB
     Indication: Macular degeneration
     Dosage: DOSE OF STUDY DRUG FIRST ADMINISTERED-10 MG/ML?30/JUL/2021, LAST DOSE WAS ADMINISTERED PRIOR TO AE.
     Route: 050
     Dates: start: 20201204
  7. MINERALS\VITAMINS [Concomitant]
     Active Substance: MINERALS\VITAMINS
     Indication: Prophylaxis
     Dosage: GIVEN FOR PROPHYLAXIS IS YES
     Dates: start: 20170509
  8. CALCIUM CARBONATE\VITAMIN D [Concomitant]
     Active Substance: CALCIUM CARBONATE\VITAMIN D
     Indication: Prophylaxis
     Dosage: GIVEN FOR PROPHYLAXIS IS YES
     Dates: start: 201706
  9. ESCITALOPRAM OXALATE [Concomitant]
     Active Substance: ESCITALOPRAM OXALATE
     Indication: Depression
     Dosage: GIVEN FOR PROPHYLAXIS IS NO
     Dates: start: 201806
  10. LISINOPRIL [Concomitant]
     Active Substance: LISINOPRIL
     Indication: Hypertension
     Dosage: GIVEN FOR PROPHYLAXIS IS NO
     Dates: start: 201706
  11. LORATADINE [Concomitant]
     Active Substance: LORATADINE
     Indication: Seasonal allergy
     Dosage: GIVEN FOR PROPHYLAXIS IS NO
     Dates: start: 201807
  12. PANTOPRAZOLE [Concomitant]
     Active Substance: PANTOPRAZOLE
     Indication: Gastrooesophageal reflux disease
     Dosage: GIVEN FOR PROPHYLAXIS IS NO
     Dates: start: 2013
  13. ZOLPIDEM [Concomitant]
     Active Substance: ZOLPIDEM TARTRATE
     Indication: Insomnia
     Dosage: GIVEN FOR PROPHYLAXIS IS NO
     Dates: start: 201606
  14. MOXIFLOXACIN [Concomitant]
     Active Substance: MOXIFLOXACIN
     Dosage: GIVEN FOR PROPHYLAXIS IS YES
     Dates: start: 20210827, end: 20210830
  15. MOXIFLOXACIN [Concomitant]
     Active Substance: MOXIFLOXACIN
     Dates: start: 20211018, end: 20211026
  16. ATORVASTATIN [Concomitant]
     Active Substance: ATORVASTATIN
     Indication: Hypercholesterolaemia
     Dosage: GIVEN FOR PROPHYLAXIS IS NO
     Dates: start: 20201026
  17. HYDROCHLOROTHIAZIDE [Concomitant]
     Active Substance: HYDROCHLOROTHIAZIDE
     Indication: Fluid retention
     Dosage: GIVEN FOR PROPHYLAXIS IS NO
     Dates: start: 20210105

REACTIONS (2)
  - Device dislocation [Recovered/Resolved]
  - No adverse event [Unknown]

NARRATIVE: CASE EVENT DATE: 20210827
